FAERS Safety Report 11194123 (Version 11)
Quarter: 2020Q2

REPORT INFORMATION
  Report Type: Spontaneous
  Country: US (occurrence: US)
  Receive Date: 20150616
  Receipt Date: 20200515
  Transmission Date: 20200713
  Serious: Yes (Hospitalization, Other)
  Sender: FDA-Public Use
  Company Number: US-PFIZER INC-2015197364

PATIENT
  Age: 66 Year
  Sex: Male
  Weight: 115 kg

DRUGS (11)
  1. NOVOLOG [Concomitant]
     Active Substance: INSULIN ASPART
     Indication: BLOOD GLUCOSE
     Dosage: 10 IU, 1X/DAY (INJECTED AFTER BREAKFAST)
  2. LYRICA [Suspect]
     Active Substance: PREGABALIN
     Indication: SEIZURE
     Dosage: 300 MG, DAILY
     Route: 048
     Dates: start: 20151127
  3. ASPIRIN. [Concomitant]
     Active Substance: ASPIRIN
     Dosage: 81 MG, 1X/DAY (ONE AT BREAKFAST)
  4. CALCITRIOL. [Concomitant]
     Active Substance: CALCITRIOL
     Indication: BLOOD IRON
     Dosage: 0.25 MG, 1X/DAY (ONE AT BREAKFAST)
  5. LYRICA [Suspect]
     Active Substance: PREGABALIN
     Indication: NEUROPATHY PERIPHERAL
     Dosage: 300 MG, 2X/DAY
     Route: 048
     Dates: start: 2005
  6. NIACIN. [Concomitant]
     Active Substance: NIACIN
     Dosage: UNK
  7. ISOSORBIDE. [Concomitant]
     Active Substance: ISOSORBIDE
     Indication: CARDIAC DISORDER
     Dosage: 30 MG, 1X/DAY (AFTER BREAKFAST)
  8. PENTOXIFYLLINE. [Concomitant]
     Active Substance: PENTOXIFYLLINE
     Indication: VEIN DISORDER
     Dosage: 400 MG, 2X/DAY
  9. LYRICA [Suspect]
     Active Substance: PREGABALIN
     Indication: DIABETIC NEUROPATHY
     Dosage: 300 MG, 2X/DAY (ONE MORNING AND ONE EVENING)
     Route: 048
     Dates: start: 2000
  10. LYRICA [Suspect]
     Active Substance: PREGABALIN
     Indication: FIBROMYALGIA
     Dosage: 300 MG, 2X/DAY (ONE IN THE MORNING AND ONE AT DINNER)
     Route: 048
     Dates: start: 20110606, end: 20150605
  11. SERTRALINE [Concomitant]
     Active Substance: SERTRALINE HYDROCHLORIDE
     Dosage: UNK

REACTIONS (14)
  - Feeling abnormal [Recovered/Resolved]
  - Hypoaesthesia [Unknown]
  - Meniscus injury [Unknown]
  - Angina pectoris [Unknown]
  - Pain [Not Recovered/Not Resolved]
  - Stress [Unknown]
  - Product dose omission [Unknown]
  - Chest discomfort [Recovered/Resolved]
  - Behaviour disorder [Unknown]
  - Limb injury [Recovered/Resolved]
  - Pain in extremity [Unknown]
  - Arthropathy [Unknown]
  - Peripheral coldness [Unknown]
  - Localised infection [Recovered/Resolved]

NARRATIVE: CASE EVENT DATE: 20150605
